FAERS Safety Report 19173403 (Version 1)
Quarter: 2021Q2

REPORT INFORMATION
  Report Type: Spontaneous
  Country: GB (occurrence: GB)
  Receive Date: 20210423
  Receipt Date: 20210423
  Transmission Date: 20210717
  Serious: Yes (Other)
  Sender: FDA-Public Use
  Company Number: GB-35507-2021-04941

PATIENT
  Age: 36 Year
  Sex: Female

DRUGS (1)
  1. SERTRALINE [Suspect]
     Active Substance: SERTRALINE HYDROCHLORIDE
     Indication: DEPRESSION
     Dosage: 50 MILLIGRAM, QD
     Route: 065

REACTIONS (5)
  - Maculopathy [Recovering/Resolving]
  - Headache [Unknown]
  - Visual impairment [Unknown]
  - Central vision loss [Not Recovered/Not Resolved]
  - Visual acuity reduced [Not Recovered/Not Resolved]
